FAERS Safety Report 5892768-2 (Version None)
Quarter: 2008Q3

REPORT INFORMATION
  Report Type: 
  Country: None (occurrence: None)
  Receive Date: 20080919
  Receipt Date: 20080919
  Transmission Date: 20090109
  Serious: Yes (Hospitalization)
  Sender: FDA-Public Use
  Company Number: None

PATIENT
  Sex: Female
  Weight: 64.8 kg

DRUGS (2)
  1. CISPLATIN [Suspect]
     Dosage: 130 MG
  2. ETOPOSIDE [Suspect]
     Dosage: 489 MG

REACTIONS (4)
  - CHILLS [None]
  - FEBRILE NEUTROPENIA [None]
  - HYPOPHAGIA [None]
  - OESOPHAGITIS [None]
